FAERS Safety Report 16803783 (Version 1)
Quarter: 2019Q3

REPORT INFORMATION
  Report Type: Spontaneous
  Country: IT (occurrence: IT)
  Receive Date: 20190913
  Receipt Date: 20190913
  Transmission Date: 20191005
  Serious: Yes (Other)
  Sender: FDA-Public Use
  Company Number: IT-PCCINC-2019-PEL-000245

PATIENT

DRUGS (4)
  1. SEVOFLURANE PIRAMAL [Suspect]
     Active Substance: SEVOFLURANE
     Indication: ANAESTHESIA
  2. SEVOFLURANE PIRAMAL [Suspect]
     Active Substance: SEVOFLURANE
     Indication: GENERAL ANAESTHESIA
     Dosage: 2 PERCENT
     Route: 055
     Dates: start: 20190501
  3. MIDAZOLAM HYDROCHLORIDE. [Suspect]
     Active Substance: MIDAZOLAM HYDROCHLORIDE
     Indication: ANAESTHETIC PREMEDICATION
     Dosage: 5 MILLIGRAM
     Route: 048
     Dates: start: 20190501
  4. PROPOFOL. [Suspect]
     Active Substance: PROPOFOL
     Indication: GENERAL ANAESTHESIA
     Dosage: 10 MILLIGRAM
     Route: 065
     Dates: start: 20190501

REACTIONS (2)
  - Respiratory arrest [Recovering/Resolving]
  - Intentional product use issue [Unknown]

NARRATIVE: CASE EVENT DATE: 20190501
